FAERS Safety Report 5508713-5 (Version None)
Quarter: 2007Q4

REPORT INFORMATION
  Report Type: 
  Country: None (occurrence: None)
  Receive Date: 20071107
  Receipt Date: 20071029
  Transmission Date: 20080405
  Serious: Yes (Other)
  Sender: FDA-Public Use
  Company Number: SE-ASTRAZENECA-2007SE05783

PATIENT
  Age: 38 Year
  Sex: Male
  Weight: 72 kg

DRUGS (1)
  1. XYLOCAINE [Suspect]
     Indication: LOCAL ANAESTHESIA
     Dates: start: 20070101

REACTIONS (3)
  - HYPOACUSIS [None]
  - MUSCLE SPASMS [None]
  - SYNCOPE [None]
